FAERS Safety Report 13723836 (Version 1)
Quarter: 2017Q3

REPORT INFORMATION
  Report Type: Spontaneous
  Country: US (occurrence: US)
  Receive Date: 20170706
  Receipt Date: 20170706
  Transmission Date: 20171127
  Serious: No
  Sender: FDA-Public Use
  Company Number: US-JNJFOC-20170316400

PATIENT
  Age: 79 Year
  Sex: Male
  Weight: 65.77 kg

DRUGS (6)
  1. KAOPECTATE REGULAR STRENGTH CHERRY FLAVOR [Concomitant]
     Active Substance: BISMUTH SUBSALICYLATE
     Indication: ABDOMINAL DISTENSION
     Dosage: DOSE: 1-2 OZ
     Route: 065
  2. KAOPECTATE REGULAR STRENGTH CHERRY FLAVOR [Concomitant]
     Active Substance: BISMUTH SUBSALICYLATE
     Indication: FLATULENCE
     Dosage: DOSE: 1-2 OZ
     Route: 065
  3. IMODIUM MULTI-SYMPTOM RELIEF [Suspect]
     Active Substance: DIMETHICONE\LOPERAMIDE HYDROCHLORIDE
     Route: 048
  4. IMODIUM MULTI-SYMPTOM RELIEF [Suspect]
     Active Substance: DIMETHICONE\LOPERAMIDE HYDROCHLORIDE
     Indication: DIARRHOEA
     Dosage: DOSE: 1-2, AFTER BOWELS
     Route: 048
     Dates: start: 20170214
  5. VITAMIN-A [Concomitant]
     Active Substance: VITAMIN A
     Route: 065
  6. KAOPECTATE REGULAR STRENGTH CHERRY FLAVOR [Concomitant]
     Active Substance: BISMUTH SUBSALICYLATE
     Indication: DIARRHOEA
     Dosage: DOSE: 1-2 OZ
     Route: 065

REACTIONS (1)
  - Diarrhoea [Recovered/Resolved]

NARRATIVE: CASE EVENT DATE: 20170214
